FAERS Safety Report 16766102 (Version 1)
Quarter: 2019Q3

REPORT INFORMATION
  Report Type: Spontaneous
  Country: JP (occurrence: JP)
  Receive Date: 20190903
  Receipt Date: 20190903
  Transmission Date: 20191005
  Serious: Yes (Other)
  Sender: FDA-Public Use
  Company Number: JP-PFIZER INC-2019350201

PATIENT
  Age: 97 Year
  Sex: Female
  Weight: 42.3 kg

DRUGS (12)
  1. IMIDAPRIL HYDROCHLORIDE [Suspect]
     Active Substance: IMIDAPRIL HYDROCHLORIDE
     Dosage: 5 MG, 1X/DAY (1 TABLET EACH TIME, AFTER BREAKFAST)
  2. RAMELTEON [Concomitant]
     Active Substance: RAMELTEON
     Dosage: 8 MG, 1X/DAY, (1 TABLET EACH TIME, BEFORE BEDTIME)
  3. ETIZOLAM [Concomitant]
     Active Substance: ETIZOLAM
     Dosage: 0.25 MG, UNK
  4. AMLODIPINE BESILATE [Suspect]
     Active Substance: AMLODIPINE BESYLATE
     Dosage: 5 MG, 1X/DAY (1 TABLET EACH TIME, AFTER BREAKFAST)
  5. URAPIDIL [Suspect]
     Active Substance: URAPIDIL
     Dosage: 15 MG, 2X/DAY (TWICE A DAY,  AFTER BREAKFAST AND DINNER)
  6. ETIZOLAM [Concomitant]
     Active Substance: ETIZOLAM
     Dosage: 0.5 MG, 1X/DAY (1 TABLET EACH TIME, BEFORE BEDTIME)
  7. FEBUXOSTAT. [Concomitant]
     Active Substance: FEBUXOSTAT
     Dosage: 10 MG, 1X/DAY (1 TABLET EACH TIME, AFTER BREAKFAST)
  8. MAGNESIUM OXIDE. [Concomitant]
     Active Substance: MAGNESIUM OXIDE
     Dosage: 330 MG, 1X/DAY (1 TABLET EACH TIME, AFTER DINNER)
  9. DONEPEZIL HCL [Suspect]
     Active Substance: DONEPEZIL HYDROCHLORIDE
     Dosage: 5 MG, DAILY (1 TABLET EACH TIME, AFTER BREAKFAST)
  10. TRICHLORMETHIAZIDE [Suspect]
     Active Substance: TRICHLORMETHIAZIDE
     Dosage: 2 MG, 1X/DAY (1 TABLET EACH TIME, AFTER BREAKFAST)
  11. BROTIZOLAM [Concomitant]
     Active Substance: BROTIZOLAM
     Dosage: 0.25 MG, 1X/DAY (1 TABLET EACH TIME, BEFORE BEDTIME)
  12. FAMOTIDINE. [Concomitant]
     Active Substance: FAMOTIDINE
     Dosage: 20 MG, 2X/DAY, (1 TABLET EACH TIME, AFTER BREAKFAST AND DINNER)

REACTIONS (2)
  - Hypotension [Recovered/Resolved]
  - Decreased appetite [Recovered/Resolved]
